FAERS Safety Report 22122951 (Version 1)
Quarter: 2023Q1

REPORT INFORMATION
  Report Type: Spontaneous
  Country: FR (occurrence: FR)
  Receive Date: 20230322
  Receipt Date: 20230322
  Transmission Date: 20230418
  Serious: Yes (Other)
  Sender: FDA-Public Use
  Company Number: FR-GLAXOSMITHKLINE-FR2022EME187177

PATIENT
  Age: 5 Year
  Sex: Female

DRUGS (2)
  1. IRINOTECAN HYDROCHLORIDE [Suspect]
     Active Substance: IRINOTECAN HYDROCHLORIDE
     Indication: Product used for unknown indication
     Dosage: UNK
  2. NIRAPARIB [Suspect]
     Active Substance: NIRAPARIB
     Indication: Pinealoblastoma
     Dosage: 100 MG, 1X/DAY

REACTIONS (8)
  - Hemiparesis [Unknown]
  - Neoplasm progression [Unknown]
  - Vomiting [Recovering/Resolving]
  - Neutrophil count decreased [Unknown]
  - Meningeal disorder [Unknown]
  - Fatigue [Unknown]
  - Headache [Unknown]
  - Off label use [Unknown]
